FAERS Safety Report 19974241 (Version 1)
Quarter: 2021Q4

REPORT INFORMATION
  Report Type: Spontaneous
  Country: US (occurrence: US)
  Receive Date: 20211020
  Receipt Date: 20211020
  Transmission Date: 20220303
  Serious: No
  Sender: FDA-Public Use
  Company Number: US-PFIZER INC-202101375876

PATIENT
  Sex: Female

DRUGS (1)
  1. PREMARIN [Suspect]
     Active Substance: ESTROGENS, CONJUGATED
     Dosage: 1.25 MG, 1X/DAY

REACTIONS (7)
  - Tremor [Unknown]
  - Hyperhidrosis [Unknown]
  - Dry mouth [Unknown]
  - Uterine disorder [Unknown]
  - Feeling abnormal [Unknown]
  - Dry skin [Unknown]
  - Aggression [Unknown]
